FAERS Safety Report 6900023-4 (Version None)
Quarter: 2010Q3

REPORT INFORMATION
  Report Type: 
  Country: None (occurrence: None)
  Receive Date: 20100803
  Receipt Date: 20100727
  Transmission Date: 20110219
  Serious: Yes (Other)
  Sender: FDA-Public Use
  Company Number: JP-WYE-H15213310

PATIENT
  Sex: Female
  Weight: 48 kg

DRUGS (1)
  1. ZOSYN [Suspect]
     Indication: PYELONEPHRITIS
     Route: 041
     Dates: start: 20100517, end: 20100517

REACTIONS (5)
  - ALLERGIC RESPIRATORY SYMPTOM [None]
  - COUGH [None]
  - HYPERSENSITIVITY [None]
  - OROPHARYNGEAL PAIN [None]
  - TONSILLAR INFLAMMATION [None]
